FAERS Safety Report 18544074 (Version 4)
Quarter: 2021Q2

REPORT INFORMATION
  Report Type: Report from Study
  Country: US (occurrence: US)
  Receive Date: 20201125
  Receipt Date: 20210526
  Transmission Date: 20210717
  Serious: Yes (Congenital Anomaly, Other)
  Sender: FDA-Public Use
  Company Number: US-AUROBINDO-AUR-APL-2020-058070

PATIENT
  Sex: Male
  Weight: 3.27 kg

DRUGS (5)
  1. DARUNAVIR [Suspect]
     Active Substance: DARUNAVIR
     Dosage: 2400 MILLIGRAM, DAILY
     Route: 064
     Dates: start: 20191011
  2. RITONAVIR. [Suspect]
     Active Substance: RITONAVIR
     Indication: PRODUCT USED FOR UNKNOWN INDICATION
     Dosage: 100 MILLIGRAM, DAILY
     Route: 064
     Dates: start: 20191011
  3. RITONAVIR. [Suspect]
     Active Substance: RITONAVIR
     Dosage: 200 MILLIGRAM, DAILY
     Route: 064
     Dates: start: 20191011
  4. TRUVADA [Suspect]
     Active Substance: EMTRICITABINE\TENOFOVIR DISOPROXIL FUMARATE
     Indication: PRODUCT USED FOR UNKNOWN INDICATION
     Dosage: 500 MILLIGRAM, DAILY
     Route: 064
     Dates: start: 20191011
  5. DARUNAVIR [Suspect]
     Active Substance: DARUNAVIR
     Indication: PRODUCT USED FOR UNKNOWN INDICATION
     Dosage: 1200 MILLIGRAM, DAILY
     Route: 064
     Dates: start: 20191011

REACTIONS (3)
  - Pyelocaliectasis [Unknown]
  - Bladder dilatation [Unknown]
  - Foetal exposure during pregnancy [Unknown]
